FAERS Safety Report 5396752-7 (Version None)
Quarter: 2007Q3

REPORT INFORMATION
  Report Type: 
  Country: None (occurrence: None)
  Receive Date: 20070725
  Receipt Date: 20070602
  Transmission Date: 20080115
  Serious: Yes (Other)
  Sender: FDA-Public Use
  Company Number: US-PURDUE-USA_2007_0028450

PATIENT
  Sex: Female

DRUGS (1)
  1. OXYCONTIN [Suspect]
     Indication: BONE PAIN

REACTIONS (3)
  - DELIRIUM TREMENS [None]
  - INFLUENZA LIKE ILLNESS [None]
  - PAIN [None]
